FAERS Safety Report 6657406-X (Version None)
Quarter: 2010Q1

REPORT INFORMATION
  Report Type: 
  Country: None (occurrence: None)
  Receive Date: 20100326
  Receipt Date: 20100316
  Transmission Date: 20100710
  Serious: Yes (Hospitalization)
  Sender: FDA-Public Use
  Company Number: B0562254A

PATIENT
  Age: 48 Year
  Sex: Male

DRUGS (2)
  1. MELPHALAN HYDROCHLORIDE [Suspect]
     Indication: PRIMARY AMYLOIDOSIS
     Dosage: INTRAVENOUS
     Route: 042
  2. DEXAMETHASONE [Concomitant]

REACTIONS (5)
  - BAND NEUTROPHIL PERCENTAGE INCREASED [None]
  - BLOOD TEST ABNORMAL [None]
  - LEUKOCYTOSIS [None]
  - PYREXIA [None]
  - RECALL PHENOMENON [None]
